FAERS Safety Report 7916712-9 (Version None)
Quarter: 2011Q4

REPORT INFORMATION
  Report Type: 
  Country: None (occurrence: None)
  Receive Date: 20111031
  Receipt Date: 20111019
  Transmission Date: 20120403
  Serious: Yes (Other)
  Sender: FDA-Public Use
  Company Number: AEUSA201100288

PATIENT
  Age: 69 Year
  Sex: Male
  Weight: 74.8435 kg

DRUGS (8)
  1. METAMUCIL-2 [Concomitant]
  2. DOVONEX [Concomitant]
  3. MULTI-VITAMINS [Concomitant]
  4. IMMUNE GLOBULIN (HUMAN) [Suspect]
     Indication: IMMUNODEFICIENCY COMMON VARIABLE
     Dosage: X1; IV
     Route: 042
     Dates: start: 20111006, end: 20111006
  5. IBUPROFEN [Concomitant]
  6. GLUCOSAMINE/CHONDROITIN) [Concomitant]
  7. AMLODIPINE [Concomitant]
  8. OMEPRAZOLE [Concomitant]

REACTIONS (7)
  - MUSCULOSKELETAL PAIN [None]
  - MUSCULOSKELETAL CHEST PAIN [None]
  - PRESYNCOPE [None]
  - FEELING ABNORMAL [None]
  - BACK PAIN [None]
  - UNRESPONSIVE TO STIMULI [None]
  - LETHARGY [None]
